FAERS Safety Report 9796451 (Version 1)
Quarter: 2014Q1

REPORT INFORMATION
  Report Type: Spontaneous
  Country: DE (occurrence: DE)
  Receive Date: 20140103
  Receipt Date: 20140103
  Transmission Date: 20141002
  Serious: Yes (Death, Life-Threatening, Hospitalization, Congenital Anomaly)
  Sender: FDA-Public Use
  Company Number: DE-MYLANLABS-2013S1028751

PATIENT
  Sex: Female
  Weight: 1.67 kg

DRUGS (4)
  1. PAROXETIN [Suspect]
     Dosage: 40 [MG/D ]
     Route: 064
     Dates: start: 20090414, end: 20090630
  2. ADALAT [Concomitant]
     Route: 064
  3. FOLIO [Concomitant]
     Indication: PROPHYLAXIS OF NEURAL TUBE DEFECT
     Dosage: 0.4 [MG/D ]
     Route: 064
  4. KADEFUNGIN [Concomitant]
     Route: 064

REACTIONS (11)
  - Congenital diaphragmatic hernia [Recovered/Resolved with Sequelae]
  - Congenital tracheomalacia [Fatal]
  - Tracheo-oesophageal fistula [Recovered/Resolved with Sequelae]
  - Vitello-intestinal duct remnant [Unknown]
  - Patent ductus arteriosus [Recovered/Resolved]
  - Oesophageal atresia [Fatal]
  - Clinodactyly [Not Recovered/Not Resolved]
  - Abnormal palmar/plantar creases [Not Recovered/Not Resolved]
  - Anomaly of external ear congenital [Not Recovered/Not Resolved]
  - Atrial septal defect [Not Recovered/Not Resolved]
  - Exposure during pregnancy [Unknown]
